FAERS Safety Report 4870386-2 (Version None)
Quarter: 2006Q1

REPORT INFORMATION
  Report Type: 
  Country: None (occurrence: None)
  Receive Date: 20060103
  Receipt Date: 20051222
  Transmission Date: 20060701
  Serious: Yes (Other)
  Sender: FDA-Public Use
  Company Number: US-JNJFOC-20051205682

PATIENT
  Sex: Female
  Weight: 99.79 kg

DRUGS (17)
  1. INFLIXIMAB [Suspect]
     Indication: RHEUMATOID ARTHRITIS
     Route: 042
  2. CALTRATE [Concomitant]
  3. CELEBREX [Concomitant]
  4. FOLIC ACID [Concomitant]
  5. HYDROCHLOROTHIAZIDE [Concomitant]
  6. LEVOXYL [Concomitant]
  7. K-DUR 10 [Concomitant]
  8. METHOTREXATE [Concomitant]
  9. PAXIL [Concomitant]
  10. MULTI-VITAMIN [Concomitant]
  11. MULTI-VITAMIN [Concomitant]
  12. MULTI-VITAMIN [Concomitant]
  13. MULTI-VITAMIN [Concomitant]
  14. MULTI-VITAMIN [Concomitant]
  15. MULTI-VITAMIN [Concomitant]
  16. MULTI-VITAMIN [Concomitant]
  17. MULTI-VITAMIN [Concomitant]

REACTIONS (1)
  - BASAL CELL CARCINOMA [None]
